FAERS Safety Report 10068057 (Version 1)
Quarter: 2014Q2

REPORT INFORMATION
  Report Type: Spontaneous
  Country: FR (occurrence: FR)
  Receive Date: 20140409
  Receipt Date: 20140409
  Transmission Date: 20141212
  Serious: Yes (Other)
  Sender: FDA-Public Use
  Company Number: PHHY2014FR042105

PATIENT
  Age: 79 Year
  Sex: Male

DRUGS (9)
  1. ZOMETA [Suspect]
     Indication: BONE DISORDER
     Dosage: 4 MG
     Route: 042
     Dates: start: 2011
  2. CLASTOBAN [Suspect]
     Dosage: 1600 MG
     Route: 048
     Dates: start: 2010
  3. INEGY [Concomitant]
     Dosage: UNK
  4. CELIPROLOL [Concomitant]
     Dosage: UNK
  5. PLAVIX [Concomitant]
     Dosage: UNK
  6. TAREG [Concomitant]
     Dosage: UNK
  7. DITROPAN [Concomitant]
     Dosage: UNK
  8. XTANDI [Concomitant]
     Dosage: UNK
  9. COLTRAMYL [Concomitant]
     Dosage: UNK

REACTIONS (1)
  - Osteonecrosis [Not Recovered/Not Resolved]
